FAERS Safety Report 5272534-1 (Version None)
Quarter: 2007Q1

REPORT INFORMATION
  Report Type: 
  Country: None (occurrence: None)
  Receive Date: 20070322
  Receipt Date: 20061017
  Transmission Date: 20070707
  Serious: Yes (Other)
  Sender: FDA-Public Use
  Company Number: US-BRISTOL-MYERS SQUIBB COMPANY-13557327

PATIENT
  Age: 7 Year
  Sex: Female
  Weight: 23 kg

DRUGS (3)
  1. KENALOG [Suspect]
     Indication: ALOPECIA AREATA
  2. CLOBETASOL PROPIONATE [Suspect]
     Indication: ALOPECIA AREATA
     Route: 061
  3. LUXIQ [Suspect]
     Indication: ALOPECIA AREATA
     Route: 061

REACTIONS (2)
  - BLOOD CORTISOL DECREASED [None]
  - GROWTH RETARDATION [None]
